FAERS Safety Report 9998064 (Version 1)
Quarter: 2014Q1

REPORT INFORMATION
  Report Type: Spontaneous
  Country: US (occurrence: US)
  Receive Date: 20140311
  Receipt Date: 20140311
  Transmission Date: 20141002
  Serious: No
  Sender: FDA-Public Use
  Company Number: US-ASTRAZENECA-2014SE09679

PATIENT
  Age: 909 Month
  Sex: Female
  Weight: 78.9 kg

DRUGS (14)
  1. NEXIUM [Suspect]
     Indication: DUODENAL ULCER
     Route: 048
     Dates: start: 201306
  2. PRILOSEC [Suspect]
     Indication: DUODENAL ULCER
     Route: 048
     Dates: start: 201306
  3. SYNTHROID [Suspect]
     Indication: HYPOTHYROIDISM
     Route: 065
     Dates: start: 1993, end: 20140113
  4. SYNTHROID [Suspect]
     Indication: HYPOTHYROIDISM
     Route: 065
  5. NORVASC [Concomitant]
     Indication: HYPERTENSION
  6. CELEXA [Concomitant]
  7. MAXIDE [Concomitant]
     Indication: HYPERTENSION
  8. COZAAR [Concomitant]
     Indication: HYPERTENSION
  9. ROPINEROLE [Concomitant]
     Indication: RESTLESS LEGS SYNDROME
  10. XALATAN [Concomitant]
     Indication: GLAUCOMA
  11. TYLENOL [Concomitant]
     Indication: PAIN
  12. ASPIRIN [Concomitant]
  13. ADVIL [Concomitant]
     Indication: PAIN
  14. ALEVE [Concomitant]
     Indication: PAIN

REACTIONS (11)
  - Blood thyroid stimulating hormone increased [Unknown]
  - Blood iron decreased [Unknown]
  - Haemoglobin decreased [Unknown]
  - Red blood cell count decreased [Unknown]
  - Haematocrit decreased [Unknown]
  - Lymphocyte count decreased [Unknown]
  - Monocyte count increased [Unknown]
  - Duodenal ulcer [Unknown]
  - Weight increased [Unknown]
  - Nausea [Recovered/Resolved]
  - Abdominal pain upper [Recovering/Resolving]
